FAERS Safety Report 5288968-5 (Version None)
Quarter: 2007Q1

REPORT INFORMATION
  Report Type: 
  Country: None (occurrence: None)
  Receive Date: 20070119
  Receipt Date: 20060509
  Transmission Date: 20070707
  Serious: Yes (Death)
  Sender: FDA-Public Use
  Company Number: 384396

PATIENT
  Age: 2 Year
  Sex: Female

DRUGS (1)
  1. VESANOID [Suspect]
     Indication: ACUTE PROMYELOCYTIC LEUKAEMIA
     Dosage: 10 MG 2 PER DAY ORAL
     Route: 048
     Dates: start: 20031202, end: 20041108

REACTIONS (2)
  - ACUTE PROMYELOCYTIC LEUKAEMIA [None]
  - MALIGNANT NEOPLASM PROGRESSION [None]
